FAERS Safety Report 24670381 (Version 1)
Quarter: 2024Q4

REPORT INFORMATION
  Report Type: Spontaneous
  Country: MX (occurrence: None)
  Receive Date: 20241126
  Receipt Date: 20241126
  Transmission Date: 20250115
  Serious: No
  Sender: Public
  Company Number: None

PATIENT
  Age: 35 Year
  Sex: Female
  Weight: 78 kg

DRUGS (1)
  1. ROSANIL [Suspect]
     Active Substance: SULFACETAMIDE\SULFUR
     Indication: Helminthic infection
     Dates: start: 20241125, end: 20241126

REACTIONS (5)
  - Headache [None]
  - Nausea [None]
  - Somnolence [None]
  - Loss of personal independence in daily activities [None]
  - Body temperature increased [None]

NARRATIVE: CASE EVENT DATE: 20241126
